FAERS Safety Report 9316611 (Version 1)
Quarter: 2013Q2

REPORT INFORMATION
  Report Type: Report from Study
  Country: US (occurrence: US)
  Receive Date: 20130530
  Receipt Date: 20130530
  Transmission Date: 20140414
  Serious: Yes (Other)
  Sender: FDA-Public Use
  Company Number: US-MYLANLABS-2013S1009850

PATIENT
  Age: 59 Year
  Sex: Female
  Weight: 113.4 kg

DRUGS (2)
  1. AMNESTEEM CAPSULES [Suspect]
     Dates: end: 20130501
  2. PREMARIN [Concomitant]

REACTIONS (2)
  - Thrombosis [Not Recovered/Not Resolved]
  - Pneumonia [Not Recovered/Not Resolved]
